FAERS Safety Report 7439256-X (Version None)
Quarter: 2011Q2

REPORT INFORMATION
  Report Type: 
  Country: None (occurrence: None)
  Receive Date: 20110421
  Receipt Date: 20110421
  Transmission Date: 20111010
  Serious: Yes (Hospitalization)
  Sender: FDA-Public Use
  Company Number: None

PATIENT
  Sex: Female
  Weight: 70.7611 kg

DRUGS (1)
  1. CLARITHROMYCIN [Suspect]
     Indication: SINUSITIS
     Dosage: 500 MG. 2X DAILY PO
     Route: 048
     Dates: start: 20110129, end: 20110207

REACTIONS (5)
  - INFLAMMATION [None]
  - EYE PAIN [None]
  - HEADACHE [None]
  - INFECTION [None]
  - LABORATORY TEST ABNORMAL [None]
